FAERS Safety Report 20088457 (Version 1)
Quarter: 2021Q4

REPORT INFORMATION
  Report Type: Spontaneous
  Country: US (occurrence: US)
  Receive Date: 20211118
  Receipt Date: 20211118
  Transmission Date: 20220303
  Serious: Yes (Life-Threatening, Hospitalization)
  Sender: FDA-Public Use
  Company Number: US-JNJFOC-20211118484

PATIENT
  Age: 20 Year
  Sex: Female

DRUGS (1)
  1. ACETAMINOPHEN [Suspect]
     Active Substance: ACETAMINOPHEN
     Indication: Product used for unknown indication
     Dosage: UNKNOWN
     Route: 048
     Dates: start: 1999

REACTIONS (7)
  - Acute hepatic failure [Recovered/Resolved]
  - Seizure [Recovered/Resolved]
  - Vision blurred [Recovered/Resolved]
  - Blood creatinine increased [Recovered/Resolved]
  - Chest X-ray abnormal [Recovered/Resolved]
  - Staphylococcal infection [Recovered/Resolved]
  - Toxicity to various agents [Recovered/Resolved]

NARRATIVE: CASE EVENT DATE: 19990117
